FAERS Safety Report 12763171 (Version 1)
Quarter: 2016Q3

REPORT INFORMATION
  Report Type: Spontaneous
  Country: US (occurrence: US)
  Receive Date: 20160920
  Receipt Date: 20160920
  Transmission Date: 20161109
  Serious: No
  Sender: FDA-Public Use
  Company Number: US-CELGENEUS-USA-2016093689

PATIENT
  Sex: Female

DRUGS (3)
  1. THALOMID [Suspect]
     Active Substance: THALIDOMIDE
     Indication: NEURODERMATITIS
     Route: 048
     Dates: start: 201301
  2. THALOMID [Suspect]
     Active Substance: THALIDOMIDE
     Route: 048
     Dates: start: 201605
  3. THALOMID [Suspect]
     Active Substance: THALIDOMIDE
     Dosage: 100MG-600MG
     Route: 048
     Dates: start: 201302

REACTIONS (1)
  - Skin disorder [Unknown]
